FAERS Safety Report 4483691-9 (Version None)
Quarter: 2004Q4

REPORT INFORMATION
  Report Type: 
  Country: None (occurrence: None)
  Receive Date: 20041022
  Receipt Date: 20041022
  Transmission Date: 20050328
  Serious: Yes (Hospitalization)
  Sender: FDA-Public Use
  Company Number: None

PATIENT
  Age: 60 Year
  Sex: Female
  Weight: 91.173 kg

DRUGS (9)
  1. NAVELBINE [Suspect]
     Indication: BREAST CANCER
     Dosage: 34 MG IV PUSH
     Route: 042
     Dates: start: 20041006
  2. TAXOTERE [Suspect]
     Indication: BREAST CANCER
     Dosage: 68 MG IV IN 250ML NS
     Route: 042
     Dates: start: 20041006
  3. . [Concomitant]
  4. ALOXI [Concomitant]
  5. NEULASTA [Concomitant]
  6. COUMADIN [Concomitant]
  7. VICODIN [Concomitant]
  8. AMBIEN [Concomitant]
  9. DECADRON [Concomitant]

REACTIONS (2)
  - FEBRILE NEUTROPENIA [None]
  - MUCOSAL INFLAMMATION [None]
